FAERS Safety Report 9657281 (Version 1)
Quarter: 2013Q4

REPORT INFORMATION
  Report Type: Spontaneous
  Country: US (occurrence: US)
  Receive Date: 20131030
  Receipt Date: 20131030
  Transmission Date: 20140711
  Serious: No
  Sender: FDA-Public Use
  Company Number: US-MALLINCKRODT-T201204088

PATIENT
  Age: 39 Year
  Sex: Female
  Weight: 48.07 kg

DRUGS (3)
  1. FENTANYL CITRATE [Suspect]
     Indication: MUSCULOSKELETAL PAIN
     Dosage: 400 UG/HR, SIX PER DAY
     Route: 048
  2. OPANA [Concomitant]
     Indication: MUSCULOSKELETAL PAIN
     Dosage: 10 MG QD
     Dates: start: 2006
  3. KADIAN [Concomitant]
     Indication: MUSCULOSKELETAL PAIN
     Dosage: 100 MG BID
     Dates: start: 2002

REACTIONS (3)
  - Inappropriate schedule of drug administration [Not Recovered/Not Resolved]
  - Dysgeusia [Not Recovered/Not Resolved]
  - Drug ineffective [Not Recovered/Not Resolved]
